FAERS Safety Report 8946898 (Version 2)
Quarter: 2012Q4

REPORT INFORMATION
  Report Type: 
  Country: FR (occurrence: FR)
  Receive Date: 20121205
  Receipt Date: 20121221
  Transmission Date: 20130627
  Serious: Yes (Death, Hospitalization)
  Sender: FDA-Public Use
  Company Number: FR-GLAXOSMITHKLINE-B0848793A

PATIENT
  Age: 82 Year
  Sex: Female
  Weight: 80 kg

DRUGS (6)
  1. ARIXTRA [Suspect]
     Indication: DEEP VEIN THROMBOSIS
     Dosage: 7.5MG Per day
     Route: 058
     Dates: start: 20121030, end: 20121110
  2. PERFALGAN [Concomitant]
     Route: 065
  3. DAFALGAN [Concomitant]
     Indication: ANALGESIC THERAPY
     Dosage: 3TAB per day
     Route: 048
  4. INEXIUM [Concomitant]
     Dosage: 1TAB per day
     Route: 048
  5. CRESTOR [Concomitant]
     Indication: DYSLIPIDAEMIA
     Dosage: 1TAB per day
     Route: 048
  6. PRETERAX [Concomitant]
     Indication: HYPERTENSION
     Dosage: 1TAB per day
     Route: 048

REACTIONS (2)
  - Abdominal wall haemorrhage [Fatal]
  - Abdominal pain [Fatal]
